FAERS Safety Report 24868323 (Version 1)
Quarter: 2025Q1

REPORT INFORMATION
  Report Type: Spontaneous
  Country: US (occurrence: US)
  Receive Date: 20250121
  Receipt Date: 20250121
  Transmission Date: 20250409
  Serious: Yes (Hospitalization)
  Sender: MYLAN
  Company Number: US-MYLANLABS-2025M1003189

PATIENT
  Age: 8 Decade
  Sex: Female

DRUGS (2)
  1. DOXYCYCLINE [Suspect]
     Active Substance: DOXYCYCLINE
     Indication: Arthropod bite
     Route: 065
  2. CEPHALEXIN [Suspect]
     Active Substance: CEPHALEXIN
     Indication: Arthropod bite
     Route: 065

REACTIONS (1)
  - Drug ineffective [Unknown]
